FAERS Safety Report 10991228 (Version 2)
Quarter: 2016Q1

REPORT INFORMATION
  Report Type: Spontaneous
  Country: US (occurrence: US)
  Receive Date: 20150406
  Receipt Date: 20160311
  Transmission Date: 20160525
  Serious: Yes (Other)
  Sender: FDA-Public Use
  Company Number: US-BAYER-2015-087013

PATIENT
  Age: 32 Year
  Sex: Female

DRUGS (29)
  1. MAXALT [Concomitant]
     Active Substance: RIZATRIPTAN BENZOATE
     Indication: HEADACHE
  2. IBUPROFEN. [Concomitant]
     Active Substance: IBUPROFEN
  3. MIRENA [Suspect]
     Active Substance: LEVONORGESTREL
     Dosage: 20 MCG/24HR, CONT
     Route: 015
     Dates: start: 20100113, end: 20140903
  4. CITALOPRAM [Concomitant]
     Active Substance: CITALOPRAM HYDROBROMIDE
     Indication: DEPRESSION
     Dosage: 40 MG, DAILY
  5. ZOLOFT [Concomitant]
     Active Substance: SERTRALINE HYDROCHLORIDE
  6. WELLBUTRIN [Concomitant]
     Active Substance: BUPROPION HYDROCHLORIDE
  7. TOPIRAMATE. [Concomitant]
     Active Substance: TOPIRAMATE
     Indication: HEADACHE
     Dosage: 100 MG, UNK
     Route: 048
  8. PROPRANOLOL [Concomitant]
     Active Substance: PROPRANOLOL\PROPRANOLOL HYDROCHLORIDE
  9. AMITRIPTYLINE HYDROCHLORIDE. [Concomitant]
     Active Substance: AMITRIPTYLINE HYDROCHLORIDE
     Dosage: 25 MG, AT BEDTIME
  10. ZOFRAN [Concomitant]
     Active Substance: ONDANSETRON HYDROCHLORIDE
  11. SENEXON [Concomitant]
     Active Substance: SENNOSIDES A AND B
  12. ONDANSETRON [Concomitant]
     Active Substance: ONDANSETRON
     Dosage: 4 MG, UNK
  13. VICODIN [Concomitant]
     Active Substance: ACETAMINOPHEN\HYDROCODONE BITARTRATE
     Indication: HEADACHE
  14. KETOCONAZOL [Concomitant]
     Active Substance: KETOCONAZOLE
  15. SOLU-MEDROL [Concomitant]
     Active Substance: METHYLPREDNISOLONE SODIUM SUCCINATE
  16. TOPIRAMATE. [Concomitant]
     Active Substance: TOPIRAMATE
     Indication: HEADACHE
     Dosage: 100 MG, BID
  17. PRILOSEC [Concomitant]
     Active Substance: OMEPRAZOLE MAGNESIUM
     Dosage: 20 MG, UNK
     Route: 048
  18. PROMETHAZINE HYDROCHLORIDE. [Concomitant]
     Active Substance: PROMETHAZINE HYDROCHLORIDE
  19. MEDROL [METHYLPREDNISOLONE ACETATE] [Concomitant]
  20. TORADOL [Concomitant]
     Active Substance: KETOROLAC TROMETHAMINE
     Dosage: 10 MG, UNK
  21. DEPAKOTE [Concomitant]
     Active Substance: DIVALPROEX SODIUM
     Dosage: 250 MG, QD
  22. LEVOTHYROXINE. [Concomitant]
     Active Substance: LEVOTHYROXINE
     Dosage: 150 ?G, UNK
     Route: 048
  23. CELEXA [Concomitant]
     Active Substance: CITALOPRAM HYDROBROMIDE
  24. PAXIL [Concomitant]
     Active Substance: PAROXETINE HYDROCHLORIDE
  25. TOPAMAX [Concomitant]
     Active Substance: TOPIRAMATE
     Dosage: 150 MG, DAILY
  26. TIZANIDINE. [Concomitant]
     Active Substance: TIZANIDINE
  27. DIAMOX SEQUELS [Concomitant]
     Active Substance: ACETAZOLAMIDE
     Indication: BENIGN INTRACRANIAL HYPERTENSION
     Dosage: 500 MG, EVERY SIX HOURS
     Dates: start: 20100713
  28. GABAPENTIN. [Concomitant]
     Active Substance: GABAPENTIN
  29. MORPHINE [Concomitant]
     Active Substance: MORPHINE
     Indication: HEADACHE

REACTIONS (10)
  - Migraine [None]
  - Vomiting [None]
  - CSF pressure increased [None]
  - Visual impairment [None]
  - Benign intracranial hypertension [None]
  - Papilloedema [None]
  - Vision blurred [None]
  - Injury [None]
  - Pain [None]
  - Nausea [None]

NARRATIVE: CASE EVENT DATE: 201002
